FAERS Safety Report 8897450 (Version 1)
Quarter: 2012Q4

REPORT INFORMATION
  Report Type: Spontaneous
  Country: US (occurrence: None)
  Receive Date: 20121108
  Receipt Date: 20121108
  Transmission Date: 20130627
  Serious: Yes (Hospitalization)
  Sender: FDA-Public Use
  Company Number: None

PATIENT
  Age: 54 Year
  Sex: Female
  Weight: 74.39 kg

DRUGS (1)
  1. ORLISTAT [Suspect]
     Route: 048
     Dates: start: 20121025, end: 20121102

REACTIONS (4)
  - Abdominal pain [None]
  - Pyrexia [None]
  - Complications of transplanted liver [None]
  - Self-medication [None]
